FAERS Safety Report 9395592 (Version 1)
Quarter: 2013Q3

REPORT INFORMATION
  Report Type: Spontaneous
  Country: US (occurrence: US)
  Receive Date: 20130711
  Receipt Date: 20130711
  Transmission Date: 20140515
  Serious: Yes (Death, Other)
  Sender: FDA-Public Use
  Company Number: PHHY2013US072579

PATIENT
  Age: 52 Year
  Sex: Male

DRUGS (1)
  1. PREDNISONE [Suspect]
     Indication: VASCULITIS
     Route: 048

REACTIONS (5)
  - Death [Fatal]
  - Headache [Unknown]
  - Sepsis [Unknown]
  - Periodontitis [Unknown]
  - Psychotic disorder [Unknown]
